FAERS Safety Report 16149894 (Version 1)
Quarter: 2019Q2

REPORT INFORMATION
  Report Type: Spontaneous
  Country: US (occurrence: US)
  Receive Date: 20190403
  Receipt Date: 20190403
  Transmission Date: 20190711
  Serious: Yes (Other)
  Sender: FDA-Public Use
  Company Number: US-ROCHE-2290714

PATIENT
  Age: 81 Year
  Sex: Female
  Weight: 74.46 kg

DRUGS (2)
  1. PREDNISONE. [Concomitant]
     Active Substance: PREDNISONE
     Route: 065
  2. ACTEMRA [Suspect]
     Active Substance: TOCILIZUMAB
     Indication: TEMPORAL ARTERITIS
     Route: 058
     Dates: start: 201805

REACTIONS (9)
  - Mass [Unknown]
  - Product dose omission [Unknown]
  - Cataract [Unknown]
  - Weight increased [Unknown]
  - Cellulitis [Recovered/Resolved]
  - Hordeolum [Not Recovered/Not Resolved]
  - Skin infection [Unknown]
  - Eye pain [Unknown]
  - Skin laceration [Unknown]

NARRATIVE: CASE EVENT DATE: 20190315
